FAERS Safety Report 5401504-5 (Version None)
Quarter: 2007Q3

REPORT INFORMATION
  Report Type: 
  Country: None (occurrence: None)
  Receive Date: 20070731
  Receipt Date: 20070327
  Transmission Date: 20080115
  Serious: No
  Sender: FDA-Public Use
  Company Number: A0644821A

PATIENT
  Age: 84 Year
  Sex: Female

DRUGS (2)
  1. DYAZIDE [Suspect]
     Dosage: 1CAP PER DAY
     Route: 048
     Dates: start: 20070301, end: 20070301
  2. FUROSEMIDE [Suspect]
     Route: 048
     Dates: start: 20070101

REACTIONS (4)
  - BURNING SENSATION [None]
  - MIDDLE INSOMNIA [None]
  - NAUSEA [None]
  - NIGHT SWEATS [None]
